FAERS Safety Report 9249295 (Version 1)
Quarter: 2013Q2

REPORT INFORMATION
  Report Type: Spontaneous
  Country: US (occurrence: US)
  Receive Date: 20130423
  Receipt Date: 20130423
  Transmission Date: 20140414
  Serious: Yes (Hospitalization)
  Sender: FDA-Public Use
  Company Number: US-ACTELION-A-US2012-72261

PATIENT
  Age: 61 Year
  Sex: Female

DRUGS (4)
  1. TRACLEER [Suspect]
     Indication: PULMONARY ARTERIAL HYPERTENSION
     Dosage: UNK
     Route: 048
     Dates: end: 20120927
  2. TRACLEER [Suspect]
     Dosage: UNK
     Route: 048
  3. ADCIRCA [Concomitant]
  4. COUMADIN [Concomitant]

REACTIONS (3)
  - Mechanical ventilation [Unknown]
  - Pneumonia [Unknown]
  - Hepatic enzyme increased [Unknown]
